FAERS Safety Report 6940122-4 (Version None)
Quarter: 2010Q3

REPORT INFORMATION
  Report Type: 
  Country: None (occurrence: None)
  Receive Date: 20100825
  Receipt Date: 20100816
  Transmission Date: 20110219
  Serious: Yes (Hospitalization)
  Sender: FDA-Public Use
  Company Number: FR-ASTRAZENECA-2010SE38277

PATIENT
  Age: 28495 Day
  Sex: Male

DRUGS (9)
  1. ATACAND [Suspect]
     Indication: HYPERTENSION
     Route: 048
     Dates: start: 20100612
  2. BUMEX [Suspect]
     Indication: RENAL FAILURE
     Route: 048
     Dates: start: 20100616
  3. ZANIDIP [Suspect]
     Indication: HYPERTENSION
     Route: 048
     Dates: start: 20100612
  4. OMEPRAZOLE [Concomitant]
  5. CYMBALTA [Concomitant]
     Indication: DEPRESSION
     Route: 048
  6. KARDEGIC [Concomitant]
     Route: 048
  7. SIMVASTATIN [Concomitant]
     Indication: BLOOD CHOLESTEROL INCREASED
  8. LANTUS [Concomitant]
     Indication: TYPE 2 DIABETES MELLITUS
     Route: 058
  9. SULFARLEM [Concomitant]
     Route: 048

REACTIONS (2)
  - DIARRHOEA [None]
  - HYPOTENSION [None]
